FAERS Safety Report 12569839 (Version 1)
Quarter: 2016Q3

REPORT INFORMATION
  Report Type: Spontaneous
  Country: US (occurrence: None)
  Receive Date: 20160718
  Receipt Date: 20160718
  Transmission Date: 20161109
  Serious: No
  Sender: FDA-Public Use
  Company Number: None

PATIENT
  Age: 29 Year
  Sex: Female

DRUGS (2)
  1. NEUTROGENA OIL-FREE MOISTURE SPF 35 [Suspect]
     Active Substance: AVOBENZONE\HOMOSALATE\OCTISALATE\OCTOCRYLENE\OXYBENZONE
     Indication: DRY SKIN PROPHYLAXIS
     Dosage: IN THE MORING  APPLIED TO A SURFACE, USUALLY THE SKIN
     Dates: start: 20160714, end: 20160716
  2. NEUTROGENA OIL-FREE MOISTURE SPF 35 [Suspect]
     Active Substance: AVOBENZONE\HOMOSALATE\OCTISALATE\OCTOCRYLENE\OXYBENZONE
     Indication: PROPHYLAXIS AGAINST SOLAR RADIATION
     Dosage: IN THE MORING  APPLIED TO A SURFACE, USUALLY THE SKIN
     Dates: start: 20160714, end: 20160716

REACTIONS (5)
  - Rash erythematous [None]
  - Rash pruritic [None]
  - Skin irritation [None]
  - Drug hypersensitivity [None]
  - Rash [None]

NARRATIVE: CASE EVENT DATE: 20160716
